FAERS Safety Report 5185905-9 (Version None)
Quarter: 2006Q4

REPORT INFORMATION
  Report Type: 
  Country: None (occurrence: None)
  Receive Date: 20061220
  Receipt Date: 20060925
  Transmission Date: 20070319
  Serious: No
  Sender: FDA-Public Use
  Company Number: US-GLAXOSMITHKLINE-A0621653A

PATIENT
  Sex: Female

DRUGS (3)
  1. NICODERM CQ [Suspect]
     Dates: start: 20060101
  2. NICODERM CQ [Suspect]
     Dates: start: 20060101
  3. NICODERM CQ [Suspect]
     Dates: start: 20060101

REACTIONS (5)
  - APHTHOUS STOMATITIS [None]
  - DRY MOUTH [None]
  - DYSGEUSIA [None]
  - EATING DISORDER [None]
  - ORAL PAIN [None]
